FAERS Safety Report 4609586-5 (Version None)
Quarter: 2005Q1

REPORT INFORMATION
  Report Type: 
  Country: None (occurrence: None)
  Receive Date: 20050314
  Receipt Date: 20050314
  Transmission Date: 20050727
  Serious: Yes (Life-Threatening)
  Sender: FDA-Public Use
  Company Number: None

PATIENT
  Age: 48 Year
  Sex: Male
  Weight: 117.9352 kg

DRUGS (1)
  1. LIPITOR [Suspect]
     Indication: HYPERCHOLESTEROLAEMIA
     Dosage: 40 MG QD PO
     Route: 048
     Dates: start: 20000103, end: 20050305

REACTIONS (4)
  - ASPARTATE AMINOTRANSFERASE INCREASED [None]
  - HAEMATURIA [None]
  - RENAL INJURY [None]
  - RHABDOMYOLYSIS [None]
